FAERS Safety Report 19791236 (Version 1)
Quarter: 2021Q3

REPORT INFORMATION
  Report Type: Report from Study
  Country: JP (occurrence: JP)
  Receive Date: 20210906
  Receipt Date: 20210906
  Transmission Date: 20211014
  Serious: Yes (Death, Hospitalization, Other)
  Sender: FDA-Public Use
  Company Number: JP-AMGEN-JPNCT2020211472

PATIENT
  Age: 89 Year
  Sex: Male

DRUGS (20)
  1. FUROSEMIDE. [Concomitant]
     Active Substance: FUROSEMIDE
     Dosage: 20 MG
     Route: 048
     Dates: start: 20180713, end: 20180908
  2. WARFARIN [WARFARIN POTASSIUM] [Concomitant]
     Active Substance: WARFARIN POTASSIUM
     Indication: ATRIAL FIBRILLATION
     Dosage: 2 MG
     Route: 048
     Dates: end: 20180301
  3. DARBEPOETIN ALFA [Suspect]
     Active Substance: DARBEPOETIN ALFA
     Dosage: 240 MICROGRAM, Q2WK
     Route: 058
     Dates: start: 20171221, end: 20180105
  4. ARGAMATE [Concomitant]
     Active Substance: CALCIUM POLYSTYRENE SULFONATE
     Indication: RENAL IMPAIRMENT
     Dosage: 75 G
     Route: 048
     Dates: end: 20180405
  5. ASPIRIN [ACETYLSALICYLIC ACID] [Concomitant]
     Active Substance: ASPIRIN
     Indication: ANGINA PECTORIS
     Dosage: 100 MG
     Route: 048
     Dates: end: 20180908
  6. DARBEPOETIN ALFA [Suspect]
     Active Substance: DARBEPOETIN ALFA
     Dosage: 240 MICROGRAM, QWK
     Route: 058
     Dates: start: 20180730, end: 20180820
  7. FUROSEMIDE. [Concomitant]
     Active Substance: FUROSEMIDE
     Dosage: 15 MG
     Route: 048
     Dates: start: 20180302, end: 20180701
  8. WARFARIN [WARFARIN POTASSIUM] [Concomitant]
     Active Substance: WARFARIN POTASSIUM
     Dosage: 2 MG
     Route: 048
     Dates: start: 20180406, end: 20180720
  9. OMEPRAZOLE. [Concomitant]
     Active Substance: OMEPRAZOLE
     Dosage: 20 MG
     Route: 065
     Dates: start: 20180625, end: 20180626
  10. DARBEPOETIN ALFA [Suspect]
     Active Substance: DARBEPOETIN ALFA
     Dosage: 240 MICROGRAM
     Route: 058
     Dates: start: 20180202
  11. ENALAPRIL MALEATE. [Concomitant]
     Active Substance: ENALAPRIL MALEATE
     Indication: HYPERTENSION
     Dosage: 5 MG
     Route: 048
     Dates: end: 20180724
  12. FUROSEMIDE. [Concomitant]
     Active Substance: FUROSEMIDE
     Indication: CARDIAC FAILURE
     Dosage: 10 MG
     Route: 048
     Dates: end: 20180301
  13. ISOSORBIDE DINITRATE. [Concomitant]
     Active Substance: ISOSORBIDE DINITRATE
     Indication: ANGINA PECTORIS
     Dosage: 40 MG
     Route: 048
     Dates: end: 20180719
  14. FUROSEMIDE. [Concomitant]
     Active Substance: FUROSEMIDE
     Dosage: 20 MG
     Route: 065
     Dates: start: 20180628, end: 20180702
  15. SPIRONOLACTONE. [Concomitant]
     Active Substance: SPIRONOLACTONE
     Indication: CARDIAC FAILURE
     Dosage: 25 MG
     Route: 048
     Dates: start: 20180702, end: 20180719
  16. WARFARIN [WARFARIN POTASSIUM] [Concomitant]
     Active Substance: WARFARIN POTASSIUM
     Dosage: 2.5 MG
     Route: 048
     Dates: start: 20180302, end: 20180405
  17. DARBEPOETIN ALFA [Suspect]
     Active Substance: DARBEPOETIN ALFA
     Indication: MYELODYSPLASTIC SYNDROME
     Dosage: UNK
     Route: 058
  18. DARBEPOETIN ALFA [Suspect]
     Active Substance: DARBEPOETIN ALFA
     Dosage: 240 MICROGRAM, Q2WK
     Route: 058
     Dates: start: 20180111, end: 20180125
  19. FUROSEMIDE. [Concomitant]
     Active Substance: FUROSEMIDE
     Dosage: 40 MG
     Route: 048
     Dates: start: 20180702, end: 20180712
  20. SULBACILLIN [Concomitant]
     Active Substance: AMPICILLIN SODIUM\SULBACTAM SODIUM
     Dosage: 6?12G
     Route: 065
     Dates: start: 20180625, end: 20180708

REACTIONS (3)
  - Haematochezia [Recovered/Resolved]
  - Death [Fatal]
  - Urinary tract infection [Recovered/Resolved]

NARRATIVE: CASE EVENT DATE: 20180623
